FAERS Safety Report 12607139 (Version 2)
Quarter: 2016Q4

REPORT INFORMATION
  Report Type: Spontaneous
  Country: FR (occurrence: FR)
  Receive Date: 20160729
  Receipt Date: 20161122
  Transmission Date: 20170207
  Serious: Yes (Other)
  Sender: FDA-Public Use
  Company Number: FR-PFIZER INC-2016354072

PATIENT
  Age: 59 Year
  Sex: Male

DRUGS (12)
  1. EMEND [Concomitant]
     Active Substance: APREPITANT
  2. NAVELBINE [Suspect]
     Active Substance: VINORELBINE TARTRATE
     Indication: ADENOCARCINOMA
     Dosage: 90 MG/MM3, SINGLE (CYCLE 2)
     Route: 042
     Dates: start: 20160524, end: 20160524
  3. ZOPHREN /00955301/ [Concomitant]
     Active Substance: ONDANSETRON
  4. SPIRONOLACTONE. [Concomitant]
     Active Substance: SPIRONOLACTONE
  5. FUROSEMIDE. [Concomitant]
     Active Substance: FUROSEMIDE
  6. BISOPROLOL HEMIFUMARATE [Concomitant]
     Active Substance: BISOPROLOL FUMARATE
  7. JOSIR [Concomitant]
     Active Substance: TAMSULOSIN
  8. TOPALGIC [Concomitant]
     Active Substance: TRAMADOL
  9. CARBOPLATINE HOSPIRA [Suspect]
     Active Substance: CARBOPLATIN
     Indication: ADENOCARCINOMA
     Dosage: 1000 MG, SINGLE (CYCLE 2)
     Route: 042
     Dates: start: 20160524, end: 20160524
  10. OLMETEC [Concomitant]
     Active Substance: OLMESARTAN MEDOXOMIL
  11. ESOMEPRAZOLE [Concomitant]
     Active Substance: ESOMEPRAZOLE
  12. KARDEGIC [Concomitant]
     Active Substance: ASPIRIN LYSINE

REACTIONS (3)
  - Erythema [Recovered/Resolved]
  - Hyperthermia [Recovered/Resolved]
  - Oedema [Recovered/Resolved]

NARRATIVE: CASE EVENT DATE: 20160524
